FAERS Safety Report 4786229-1 (Version None)
Quarter: 2005Q3

REPORT INFORMATION
  Report Type: 
  Country: None (occurrence: None)
  Receive Date: 20050930
  Receipt Date: 20050924
  Transmission Date: 20060218
  Serious: Yes (Other)
  Sender: FDA-Public Use
  Company Number: 2005098206

PATIENT
  Age: 72 Year
  Sex: Male
  Weight: 72.5755 kg

DRUGS (3)
  1. LIPITOR [Suspect]
     Indication: BLOOD CHOLESTEROL INCREASED
     Dosage: 10 MG (10 MG, 1 IN 1 D),ORAL
     Route: 048
     Dates: start: 20030101, end: 20051101
  2. VITAMINS (VITAMINS) [Concomitant]
  3. MINERAL SUPPLEMENTS (MINERAL SUPPLEMENTS) [Concomitant]

REACTIONS (5)
  - HEPATIC ENZYME ABNORMAL [None]
  - HEPATIC STEATOSIS [None]
  - HEPATITIS [None]
  - LIVER DISORDER [None]
  - SCAR [None]
